FAERS Safety Report 5506172-X (Version None)
Quarter: 2007Q4

REPORT INFORMATION
  Report Type: 
  Country: None (occurrence: None)
  Receive Date: 20071102
  Receipt Date: 20071102
  Transmission Date: 20080405
  Serious: Yes (Death)
  Sender: FDA-Public Use
  Company Number: None

PATIENT
  Age: 88 Year
  Sex: Female
  Weight: 60.2 kg

DRUGS (16)
  1. COUMADIN [Suspect]
     Indication: AORTIC VALVE REPLACEMENT
     Dosage: DAILY PO
     Route: 048
  2. PRED FORTE [Concomitant]
  3. PROVIGIL [Concomitant]
  4. PROVENTIL GENTLEHALER [Concomitant]
  5. IMODIUM ADVANCED [Concomitant]
  6. SENNA-S [Concomitant]
  7. PRINIVIL [Concomitant]
  8. MULTI-VITS [Concomitant]
  9. NITRE-DUR [Concomitant]
  10. OS-CAL [Concomitant]
  11. DILANTIN [Concomitant]
  12. DIOVAN [Concomitant]
  13. LIPITOR [Concomitant]
  14. NORVASC [Concomitant]
  15. CLONIDINE [Concomitant]
  16. ASPIRIN [Concomitant]

REACTIONS (3)
  - ANAEMIA [None]
  - THERAPEUTIC AGENT TOXICITY [None]
  - UPPER GASTROINTESTINAL HAEMORRHAGE [None]
